FAERS Safety Report 4318534-7 (Version None)
Quarter: 2004Q1

REPORT INFORMATION
  Report Type: 
  Country: None (occurrence: None)
  Receive Date: 20040315
  Receipt Date: 20040302
  Transmission Date: 20041129
  Serious: Yes (Hospitalization, Other)
  Sender: FDA-Public Use
  Company Number: 2004202037GR

PATIENT
  Age: 72 Year
  Sex: Male

DRUGS (3)
  1. DELTA-CORTEF [Suspect]
     Indication: JUVENILE ARTHRITIS
     Dosage: 1 MG/KG, IV
     Route: 042
  2. SOLU-MEDROL [Suspect]
     Indication: JUVENILE ARTHRITIS
     Dosage: 1 G, QD, IV; SEE IMAGE
     Route: 042
  3. NAPROXEN [Concomitant]

REACTIONS (4)
  - DRUG INEFFECTIVE [None]
  - HYPERGLYCAEMIA [None]
  - MYOPATHY [None]
  - RENAL IMPAIRMENT [None]
